FAERS Safety Report 8720302 (Version 3)
Quarter: 2012Q4

REPORT INFORMATION
  Report Type: 
  Country: JP (occurrence: JP)
  Receive Date: 20120813
  Receipt Date: 20120912
  Transmission Date: 20130627
  Serious: Yes (Other)
  Sender: FDA-Public Use
  Company Number: JP-B.I. PHARMACEUTICALS,INC./RIDGEFIELD-2012-BP-18709NB

PATIENT
  Age: 8 None
  Sex: Female

DRUGS (4)
  1. MICOMBI COMBINATION [Suspect]
     Indication: HYPERTENSION
     Route: 048
     Dates: start: 201201
  2. MICOMBI COMBINATION [Suspect]
     Route: 065
  3. VASOLAN [Concomitant]
     Dosage: 120 mg
     Route: 048
  4. AMLODIN [Concomitant]
     Dosage: 5 mg
     Route: 048

REACTIONS (2)
  - Cerebral infarction [Recovered/Resolved]
  - Hyponatraemia [Recovered/Resolved]
